FAERS Safety Report 17176179 (Version 4)
Quarter: 2020Q1

REPORT INFORMATION
  Report Type: Spontaneous
  Country: PL (occurrence: PL)
  Receive Date: 20191219
  Receipt Date: 20200323
  Transmission Date: 20200409
  Serious: Yes (Hospitalization)
  Sender: FDA-Public Use
  Company Number: NVSC2019PL067128

PATIENT
  Age: 60 Year
  Sex: Female

DRUGS (4)
  1. VANCOMYCIN [Concomitant]
     Active Substance: VANCOMYCIN
     Indication: HEPATIC CYST INFECTION
     Dosage: UNK
     Route: 065
  2. PIPERACILLIN/TAZOBACTAM [Concomitant]
     Active Substance: PIPERACILLIN SODIUM\TAZOBACTAM SODIUM
     Indication: HEPATIC CYST INFECTION
     Dosage: UNK
     Route: 065
  3. MEROPENEM. [Concomitant]
     Active Substance: MEROPENEM
     Indication: HEPATIC CYST INFECTION
     Dosage: UNK
     Route: 065
  4. CIPROFLOXACIN. [Suspect]
     Active Substance: CIPROFLOXACIN
     Indication: HEPATIC CYST INFECTION
     Dosage: UNK
     Route: 048

REACTIONS (4)
  - Infection [Recovered/Resolved]
  - Pyrexia [Recovering/Resolving]
  - Hepatic cyst infection [Recovered/Resolved]
  - Asthenia [Recovering/Resolving]
